FAERS Safety Report 5780366-0 (Version None)
Quarter: 2008Q2

REPORT INFORMATION
  Report Type: 
  Country: None (occurrence: None)
  Receive Date: 20080620
  Receipt Date: 20080618
  Transmission Date: 20081010
  Serious: Yes (Other)
  Sender: FDA-Public Use
  Company Number: B0525835A

PATIENT
  Age: 19 Year
  Sex: Female

DRUGS (1)
  1. CLENIL [Suspect]
     Route: 055

REACTIONS (2)
  - ORAL PAIN [None]
  - PHARYNGOLARYNGEAL PAIN [None]
